FAERS Safety Report 6676772-2 (Version None)
Quarter: 2010Q2

REPORT INFORMATION
  Report Type: 
  Country: None (occurrence: None)
  Receive Date: 20100409
  Receipt Date: 20100409
  Transmission Date: 20101027
  Serious: Yes (Hospitalization)
  Sender: FDA-Public Use
  Company Number: None

PATIENT
  Sex: Male
  Weight: 85.7298 kg

DRUGS (1)
  1. BYETTA [Suspect]
     Dosage: BYETTA 5MG BID S.C.
     Route: 058
     Dates: start: 20100127, end: 20100228

REACTIONS (1)
  - PANCREATITIS ACUTE [None]
